FAERS Safety Report 9222354 (Version 2)
Quarter: 2013Q2

REPORT INFORMATION
  Report Type: Spontaneous
  Country: US (occurrence: US)
  Receive Date: 20130410
  Receipt Date: 20130502
  Transmission Date: 20140414
  Serious: Yes (Hospitalization)
  Sender: FDA-Public Use
  Company Number: US-JNJFOC-20130318243

PATIENT
  Age: 78 Year
  Sex: Female
  Weight: 78.88 kg

DRUGS (15)
  1. RISPERDAL CONSTA [Suspect]
     Indication: PSYCHOTIC DISORDER
     Route: 030
  2. AMANTADINE [Concomitant]
     Route: 048
  3. AMIODARONE [Concomitant]
     Route: 048
  4. COUMADIN [Concomitant]
     Route: 048
  5. LISINOPRIL [Concomitant]
     Route: 048
  6. SEROQUEL [Concomitant]
     Route: 048
  7. SINEMET [Concomitant]
     Route: 048
  8. SYNTHROID [Concomitant]
     Route: 048
  9. REQUIP [Concomitant]
     Route: 048
  10. MIRTAZAPINE [Concomitant]
     Route: 048
  11. MELOXICAM [Concomitant]
     Route: 048
  12. PROTONIX [Concomitant]
     Route: 048
  13. ENTERIC COATED BABY ASPIRIN [Concomitant]
     Route: 048
  14. MAGNESIUM CHLORIDE [Concomitant]
     Route: 048
  15. POTASSIUM CHLORIDE [Concomitant]
     Route: 048

REACTIONS (3)
  - Adverse event [Unknown]
  - Drug administration error [Unknown]
  - Wrong technique in drug usage process [Unknown]
